FAERS Safety Report 6349716-0 (Version None)
Quarter: 2009Q3

REPORT INFORMATION
  Report Type: 
  Country: None (occurrence: None)
  Receive Date: 20090911
  Receipt Date: 20090831
  Transmission Date: 20100115
  Serious: Yes (Hospitalization)
  Sender: FDA-Public Use
  Company Number: US-WATSON-2009-07115

PATIENT
  Age: 18 Year
  Sex: Female

DRUGS (2)
  1. HEPARIN SODIUM [Suspect]
     Indication: THROMBOSIS
     Dosage: UNK
  2. ENOXAPARIN SODIUM [Suspect]
     Indication: THROMBOSIS
     Dosage: UNK

REACTIONS (3)
  - HEPARIN-INDUCED THROMBOCYTOPENIA [None]
  - SPLENIC INFARCTION [None]
  - SPLENIC RUPTURE [None]
